FAERS Safety Report 9033168 (Version 3)
Quarter: 2013Q4

REPORT INFORMATION
  Report Type: Spontaneous
  Country: US (occurrence: US)
  Receive Date: 20130128
  Receipt Date: 20131107
  Transmission Date: 20140711
  Serious: Yes (Hospitalization, Disabling, Other)
  Sender: FDA-Public Use
  Company Number: US-BAYER-2013-005961

PATIENT
  Age: 27 Year
  Sex: Female
  Weight: 77 kg

DRUGS (4)
  1. MIRENA [Suspect]
     Indication: CONTRACEPTION
     Dosage: 20 MCG/24HR, CONT
     Route: 015
     Dates: start: 20081027, end: 20100121
  2. VITAMIN B12 [Concomitant]
  3. LORTAB [Concomitant]
     Indication: PAIN
     Dosage: 7.5 MG, EVERY 3 HOURS
  4. ANAPROX DS [Concomitant]
     Dosage: 550 MG, EVERY 8 HOURS

REACTIONS (14)
  - Uterine perforation [None]
  - Uterine perforation [None]
  - Abdominal pain [None]
  - Nephrolithiasis [None]
  - Ectopic pregnancy [None]
  - Drug ineffective [None]
  - Infertility female [None]
  - Scar [None]
  - Hypoaesthesia [None]
  - Depression [None]
  - Anxiety [None]
  - Injury [None]
  - Pain [None]
  - Emotional distress [None]
